FAERS Safety Report 11338397 (Version 1)
Quarter: 2015Q3

REPORT INFORMATION
  Report Type: Spontaneous
  Country: US (occurrence: US)
  Receive Date: 20150803
  Receipt Date: 20150803
  Transmission Date: 20151125
  Serious: No
  Sender: FDA-Public Use
  Company Number: US-ELI_LILLY_AND_COMPANY-US200708002744

PATIENT
  Age: 13 Year
  Sex: Female

DRUGS (4)
  1. DEXADRIN [Concomitant]
     Dosage: 15 MG, EACH EVENING
  2. DEXADRIN [Concomitant]
     Dosage: 30 MG, EACH MORNING
  3. ZOLOFT [Concomitant]
     Active Substance: SERTRALINE HYDROCHLORIDE
  4. STRATTERA [Suspect]
     Active Substance: ATOMOXETINE HYDROCHLORIDE
     Route: 048
     Dates: start: 2005

REACTIONS (1)
  - Urinary retention [Recovered/Resolved]
